FAERS Safety Report 15291123 (Version 2)
Quarter: 2018Q3

REPORT INFORMATION
  Report Type: Spontaneous
  Country: CA (occurrence: CA)
  Receive Date: 20180817
  Receipt Date: 20180827
  Transmission Date: 20181010
  Serious: Yes (Death, Hospitalization, Other)
  Sender: FDA-Public Use
  Company Number: CA-TEVA-2018-CA-943494

PATIENT
  Age: 61 Year
  Sex: Male

DRUGS (1)
  1. FLUDARABINE [Suspect]
     Active Substance: FLUDARABINE PHOSPHATE
     Dosage: DIN 02283859; NON?INVESTIGATIONAL PRODUCT, FOR NON?TOTAL BODY IRRADIATION CONDITIONING REGIMEN
     Route: 042
     Dates: start: 20180104, end: 20180108

REACTIONS (19)
  - Toxic encephalopathy [Fatal]
  - Electrolyte depletion [Unknown]
  - Hypokalaemia [Unknown]
  - Hypomagnesaemia [Unknown]
  - Sepsis [Unknown]
  - Speech disorder [Unknown]
  - Encephalomalacia [Unknown]
  - Disorientation [Unknown]
  - Leukopenia [Unknown]
  - Protein total increased [Unknown]
  - Muscular weakness [Unknown]
  - Psychomotor retardation [Unknown]
  - Somnolence [Unknown]
  - Infection [Unknown]
  - Meningitis [Unknown]
  - Delirium [Unknown]
  - Movement disorder [Unknown]
  - Confusional state [Unknown]
  - Ischaemic neuropathy [Unknown]
